FAERS Safety Report 6138093-6 (Version None)
Quarter: 2009Q1

REPORT INFORMATION
  Report Type: 
  Country: None (occurrence: None)
  Receive Date: 20090331
  Receipt Date: 20090323
  Transmission Date: 20090719
  Serious: Yes (Other)
  Sender: FDA-Public Use
  Company Number: CA-BAXTER-2009BH004171

PATIENT
  Age: 69 Year
  Sex: Female
  Weight: 50 kg

DRUGS (8)
  1. HIGHLY CONCENTRATED POTASSIUM CHLORIDE INJECTION IN PLASTIC CONTAINER [Suspect]
     Indication: HYPOKALAEMIA
     Route: 042
     Dates: start: 20090313, end: 20090313
  2. DOMPERIDONE [Concomitant]
     Indication: DRUG USE FOR UNKNOWN INDICATION
     Route: 065
  3. ERYTHROMYCIN [Concomitant]
     Indication: DRUG USE FOR UNKNOWN INDICATION
     Route: 065
  4. ZYPREXA [Concomitant]
     Indication: DRUG USE FOR UNKNOWN INDICATION
     Route: 065
  5. CLONAZEPAM [Concomitant]
     Indication: DRUG USE FOR UNKNOWN INDICATION
     Route: 065
  6. POTASSIUM CHLORIDE [Concomitant]
     Indication: DRUG USE FOR UNKNOWN INDICATION
     Route: 065
  7. SEVOFLURANE [Concomitant]
     Indication: OESOPHAGEAL DILATION PROCEDURE
     Route: 055
     Dates: start: 20090313, end: 20090313
  8. NITROUS OXIDE [Concomitant]
     Indication: OESOPHAGEAL DILATION PROCEDURE
     Route: 055
     Dates: start: 20090313, end: 20090313

REACTIONS (2)
  - CARDIAC ARREST [None]
  - DRUG ADMINISTRATION ERROR [None]
